FAERS Safety Report 6113927-X (Version None)
Quarter: 2009Q1

REPORT INFORMATION
  Report Type: 
  Country: None (occurrence: None)
  Receive Date: 20090312
  Receipt Date: 20060421
  Transmission Date: 20090719
  Serious: Yes (Hospitalization)
  Sender: FDA-Public Use
  Company Number: DE-GENENTECH-278929

PATIENT
  Sex: Female

DRUGS (5)
  1. RITUXIMAB [Suspect]
     Indication: MANTLE CELL LYMPHOMA
     Dosage: 650 MG, UNK
     Dates: start: 20060406, end: 20060406
  2. CYCLOPHOSPHAMIDE [Suspect]
     Indication: MANTLE CELL LYMPHOMA
     Dosage: 1300 MG, UNK
     Dates: start: 20060407, end: 20060407
  3. ADRIAMYCIN PFS [Suspect]
     Indication: MANTLE CELL LYMPHOMA
     Dosage: 85 MG, UNK
     Dates: start: 20060407, end: 20060407
  4. VINCRISTINE [Suspect]
     Indication: MANTLE CELL LYMPHOMA
     Dosage: 2 MG, UNK
     Dates: start: 20060407, end: 20060407
  5. PREDNISOLONE [Suspect]
     Indication: MANTLE CELL LYMPHOMA
     Dosage: 500 MG, UNK
     Dates: start: 20060409, end: 20060411

REACTIONS (1)
  - MYOCARDIAL INFARCTION [None]
